FAERS Safety Report 17012246 (Version 2)
Quarter: 2019Q4

REPORT INFORMATION
  Report Type: Report from Study
  Country: JP (occurrence: JP)
  Receive Date: 20191108
  Receipt Date: 20191112
  Transmission Date: 20200122
  Serious: Yes (Death, Hospitalization)
  Sender: FDA-Public Use
  Company Number: JP-CELGENEUS-JPN-2014103741

PATIENT
  Age: 53 Year
  Sex: Male
  Weight: 57.8 kg

DRUGS (29)
  1. WHITE PETROLATUM [Concomitant]
     Active Substance: PETROLATUM
     Indication: PSORIASIS
     Dosage: 1 EXPOSURE
     Route: 061
     Dates: start: 20140327
  2. SOLDEM [Concomitant]
     Active Substance: DEXTROSE\POTASSIUM CHLORIDE\SODIUM CHLORIDE\SODIUM LACTATE
     Indication: PRODUCT USED FOR UNKNOWN INDICATION
     Dosage: 500 MILLILITER
     Route: 041
     Dates: start: 20141023, end: 20141023
  3. LOPREZOL [Concomitant]
     Active Substance: LANSOPRAZOLE
     Indication: SCAN WITH CONTRAST
     Route: 041
     Dates: start: 20141106, end: 20141119
  4. CODEINE PHOSPHATE HYDRATE [Concomitant]
     Active Substance: CODEINE PHOSPHATE
     Indication: METASTASIS
     Dosage: 6 GRAM
     Route: 048
     Dates: start: 20141107, end: 20141109
  5. PEMETREXED SODIUM HYDRATE [Concomitant]
     Active Substance: PEMETREXED
     Indication: METASTASIS
     Route: 041
     Dates: start: 20141109, end: 20141117
  6. PREDNISOLONE. [Concomitant]
     Active Substance: PREDNISOLONE
     Indication: PSORIASIS
     Route: 061
     Dates: start: 20140327
  7. LEVOFLOXACIN HEMIHYDRATE [Concomitant]
     Active Substance: LEVOFLOXACIN
     Indication: PRODUCT USED FOR UNKNOWN INDICATION
     Dosage: 500 MILLIGRAM
     Route: 048
     Dates: start: 20141023, end: 20141027
  8. SOLDEM [Concomitant]
     Active Substance: DEXTROSE\POTASSIUM CHLORIDE\SODIUM CHLORIDE\SODIUM LACTATE
     Indication: BIOPSY LUNG
     Dosage: 500 MILLILITER
     Route: 041
     Dates: start: 20141107, end: 20141107
  9. ATROPINE SULFATE. [Concomitant]
     Active Substance: ATROPINE SULFATE
     Indication: PRODUCT USED FOR UNKNOWN INDICATION
     Dosage: .5 MILLIGRAM
     Route: 041
     Dates: start: 20141023, end: 20141023
  10. CARBOPLATIN. [Concomitant]
     Active Substance: CARBOPLATIN
     Indication: PRODUCT USED FOR UNKNOWN INDICATION
     Route: 065
     Dates: start: 20141117
  11. SULBENICILLIN [Concomitant]
     Indication: METASTASIS
     Dosage: 6 GRAM
     Route: 041
     Dates: start: 20141109, end: 20141111
  12. CC-10004 [Suspect]
     Active Substance: APREMILAST
     Indication: PSORIASIS
     Dosage: 40 MILLIGRAM
     Route: 048
     Dates: start: 20140403, end: 20141016
  13. CARBAZOCHROME SODIUM [Concomitant]
     Dosage: 100 MILLIGRAM
     Route: 048
     Dates: start: 20141023, end: 20141023
  14. LOXOPROFEN SODIUM HYDRATE [Concomitant]
     Active Substance: LOXOPROFEN SODIUM DIHYDRATE
     Indication: CHEST PAIN
     Dosage: 180 MILLIGRAM
     Route: 048
     Dates: start: 20141031
  15. TEPRENONE [Concomitant]
     Active Substance: TEPRENONE
     Indication: PROPHYLAXIS
     Dosage: 150 MILLIGRAM
     Route: 048
     Dates: start: 20141031
  16. CARBAZOCHROME SODIUM [Concomitant]
     Indication: PRODUCT USED FOR UNKNOWN INDICATION
     Dosage: 90 MILLIGRAM
     Route: 048
     Dates: start: 20141023, end: 20141027
  17. HYDROXYZINE [Concomitant]
     Active Substance: HYDROXYZINE HYDROCHLORIDE
     Indication: PRODUCT USED FOR UNKNOWN INDICATION
     Dosage: .5 MILLIGRAM
     Route: 041
     Dates: start: 20141023, end: 20141023
  18. DEXTROMETHORPHAN HYDROBROMIDE HYDRATE [Concomitant]
     Active Substance: DEXTROMETHORPHAN HYDROBROMIDE
     Indication: COUGH
     Dosage: 45 MILLIGRAM
     Route: 048
     Dates: start: 20141031
  19. POVIDONE-IODINE. [Concomitant]
     Active Substance: POVIDONE-IODINE
     Indication: BIOPSY LUNG
     Route: 061
     Dates: start: 20141107, end: 20141107
  20. BROCIN-CODEINE [Concomitant]
     Indication: METASTASIS
     Dosage: 6 MILLILITER
     Route: 048
     Dates: start: 20141110
  21. NAPROXEN. [Concomitant]
     Active Substance: NAPROXEN
     Indication: METASTASIS
     Dosage: 300 MILLIGRAM
     Route: 048
     Dates: start: 20141107
  22. TRANEXAMIC ACID. [Concomitant]
     Active Substance: TRANEXAMIC ACID
     Indication: PRODUCT USED FOR UNKNOWN INDICATION
     Dosage: 100 MILLIGRAM
     Route: 048
     Dates: start: 20141023, end: 20141023
  23. HYDRO ETHANOL [Concomitant]
     Indication: BIOPSY LUNG
     Route: 061
     Dates: start: 20141107, end: 20141107
  24. CEFTRIAXONE SODIUM HYDRATE [Concomitant]
     Active Substance: CEFTRIAXONE SODIUM
     Indication: METASTASIS
     Route: 041
     Dates: start: 20141107, end: 20141119
  25. ADRENALINE [Concomitant]
     Active Substance: EPINEPHRINE
     Indication: PRODUCT USED FOR UNKNOWN INDICATION
     Dosage: 1 MILLIGRAM
     Route: 039
     Dates: start: 20141023, end: 20141023
  26. LIDOCAINE HYDROCHLORIDE. [Concomitant]
     Active Substance: LIDOCAINE HYDROCHLORIDE
     Indication: BIOPSY LUNG
     Route: 061
     Dates: start: 20141107, end: 20141107
  27. NAPROXEN. [Concomitant]
     Active Substance: NAPROXEN
     Dosage: 600 MILLIGRAM
     Route: 048
     Dates: start: 20141130, end: 20141212
  28. MORPHINE HYDROCHLORIDE [Concomitant]
     Active Substance: MORPHINE HYDROCHLORIDE
     Indication: PRODUCT USED FOR UNKNOWN INDICATION
     Dosage: 10 MILLIGRAM
     Route: 041
     Dates: start: 20141212, end: 20141212
  29. TRANEXAMIC ACID. [Concomitant]
     Active Substance: TRANEXAMIC ACID
     Dosage: 75 MILLIGRAM
     Route: 048
     Dates: start: 20141023, end: 20141027

REACTIONS (1)
  - Large cell lung cancer metastatic [Fatal]

NARRATIVE: CASE EVENT DATE: 20141016
